FAERS Safety Report 12191191 (Version 1)
Quarter: 2016Q1

REPORT INFORMATION
  Report Type: Spontaneous
  Country: VE (occurrence: VE)
  Receive Date: 20160318
  Receipt Date: 20160318
  Transmission Date: 20160526
  Serious: Yes (Hospitalization)
  Sender: FDA-Public Use
  Company Number: PHHY2016VE036022

PATIENT
  Sex: Female

DRUGS (2)
  1. FOMENE//TETRIDAMINE [Concomitant]
     Indication: HYSTERECTOMY
     Dosage: 2.5 MG, QD
     Route: 065
     Dates: start: 2011
  2. DIOVAN [Suspect]
     Active Substance: VALSARTAN
     Indication: HYPERTENSION
     Dosage: 80 MG, QD
     Route: 048
     Dates: start: 2011, end: 2014

REACTIONS (8)
  - Malaise [Recovered/Resolved]
  - Crystal urine present [Recovered/Resolved]
  - Cold sweat [Recovered/Resolved]
  - Heart rate increased [Recovered/Resolved]
  - Urinary tract infection [Recovered/Resolved]
  - Cardiac disorder [Recovered/Resolved]
  - Memory impairment [Recovered/Resolved]
  - Nephrolithiasis [Recovered/Resolved]

NARRATIVE: CASE EVENT DATE: 2014
